FAERS Safety Report 5416900-X (Version None)
Quarter: 2007Q3

REPORT INFORMATION
  Report Type: 
  Country: None (occurrence: None)
  Receive Date: 20070718
  Receipt Date: 20060526
  Transmission Date: 20080115
  Serious: Yes (Hospitalization, Other)
  Sender: FDA-Public Use
  Company Number: 2006057865

PATIENT
  Age: 62 Year
  Sex: Male
  Weight: 78.9259 kg

DRUGS (1)
  1. CELEBREX [Suspect]
     Indication: ILL-DEFINED DISORDER
     Dosage: 400 MG 9200 MG, 2 IN 1 D), ORAL
     Route: 048

REACTIONS (4)
  - CARDIAC FAILURE CONGESTIVE [None]
  - HAEMATURIA [None]
  - MYOCARDIAL INFARCTION [None]
  - THERMAL BURN [None]
